FAERS Safety Report 24367598 (Version 2)
Quarter: 2024Q4

REPORT INFORMATION
  Report Type: Spontaneous
  Country: DE (occurrence: DE)
  Receive Date: 20240926
  Receipt Date: 20241011
  Transmission Date: 20250115
  Serious: Yes (Other)
  Sender: TAKEDA
  Company Number: DE-TAKEDA-2024TUS092853

PATIENT
  Sex: Female

DRUGS (3)
  1. CUVITRU [Suspect]
     Active Substance: HUMAN IMMUNOGLOBULIN G
     Indication: Immunodeficiency common variable
     Dosage: 10 GRAM, 1/WEEK
     Route: 042
  2. CUVITRU [Suspect]
     Active Substance: HUMAN IMMUNOGLOBULIN G
     Indication: Blood immunoglobulin G decreased
     Dosage: 10 GRAM, 1/WEEK
     Route: 042
  3. PANCRELIPASE [Concomitant]
     Active Substance: PANCRELIPASE
     Dosage: UNK UNK, TID
     Route: 065
     Dates: start: 2020

REACTIONS (10)
  - Plasma cell myeloma [Recovering/Resolving]
  - Bacterial abdominal infection [Recovering/Resolving]
  - Gastrointestinal disorder [Recovering/Resolving]
  - Drug ineffective [Unknown]
  - General physical health deterioration [Unknown]
  - Pleurisy [Unknown]
  - Weight decreased [Unknown]
  - Product supply issue [Unknown]
  - Decreased appetite [Recovering/Resolving]
  - Diarrhoea [Not Recovered/Not Resolved]
